FAERS Safety Report 8906984 (Version 1)
Quarter: 2012Q4

REPORT INFORMATION
  Report Type: 
  Country: US (occurrence: US)
  Receive Date: 20121114
  Receipt Date: 20121114
  Transmission Date: 20130627
  Serious: Yes (Hospitalization)
  Sender: FDA-Public Use
  Company Number: US-BAYER-2012-116508

PATIENT
  Age: 26 Year
  Sex: Female

DRUGS (8)
  1. YASMIN [Suspect]
  2. SYNTHROID [Concomitant]
     Dosage: 175 ug
  3. VICODIN [Concomitant]
  4. DILAUDID [Concomitant]
  5. LEVAQUIN [Concomitant]
     Indication: PNEUMONIA
  6. TORADOL [Concomitant]
  7. IBUPROFEN [Concomitant]
  8. PREDNISONE [Concomitant]
     Indication: PLEURISY
     Dosage: UNK

REACTIONS (1)
  - Pulmonary embolism [Recovered/Resolved]
